FAERS Safety Report 16169326 (Version 1)
Quarter: 2019Q2

REPORT INFORMATION
  Report Type: Report from Study
  Country: US (occurrence: US)
  Receive Date: 20190408
  Receipt Date: 20190408
  Transmission Date: 20190711
  Serious: Yes (Hospitalization, Other)
  Sender: FDA-Public Use
  Company Number: US-GILEAD-2019-0401039

PATIENT
  Age: 76 Year
  Sex: Female

DRUGS (14)
  1. ADEMPAS [Concomitant]
     Active Substance: RIOCIGUAT
  2. PANTOPRAZOLE [Concomitant]
     Active Substance: PANTOPRAZOLE
  3. SPIRONOLACTONE. [Concomitant]
     Active Substance: SPIRONOLACTONE
  4. LIDOCAINE. [Concomitant]
     Active Substance: LIDOCAINE
  5. URSODIOL. [Concomitant]
     Active Substance: URSODIOL
  6. AMBRISENTAN [Suspect]
     Active Substance: AMBRISENTAN
     Indication: PULMONARY ARTERIAL HYPERTENSION
     Dosage: 5 MG, QD
     Route: 065
     Dates: start: 20140822
  7. XIFAXAN [Concomitant]
     Active Substance: RIFAXIMIN
  8. FUROSEMIDE. [Concomitant]
     Active Substance: FUROSEMIDE
  9. ANUSOL [BISMUTH OXIDE;BISMUTH SUBGALLATE;ZINC OXIDE] [Concomitant]
  10. LINZESS [Concomitant]
     Active Substance: LINACLOTIDE
  11. URSO FORTE [Concomitant]
     Active Substance: URSODIOL
  12. ALPRAZOLAM. [Concomitant]
     Active Substance: ALPRAZOLAM
  13. CITALOPRAM [Concomitant]
     Active Substance: CITALOPRAM HYDROBROMIDE
  14. COLCHICINE. [Concomitant]
     Active Substance: COLCHICINE

REACTIONS (1)
  - Intestinal obstruction [Recovered/Resolved]
